FAERS Safety Report 11099738 (Version 1)
Quarter: 2015Q2

REPORT INFORMATION
  Report Type: Report from Study
  Country: JP (occurrence: None)
  Receive Date: 20150506
  Receipt Date: 20150506
  Transmission Date: 20150821
  Serious: Yes (Other)
  Sender: FDA-Public Use
  Company Number: 2015JP003867

PATIENT
  Age: 69 Year
  Sex: Female
  Weight: 45 kg

DRUGS (5)
  1. LYRICA [Concomitant]
     Active Substance: PREGABALIN
  2. MOHRUS ( KETOPROFEN) [Concomitant]
  3. RIZE (CLOTIAZEPAM) [Concomitant]
  4. REGINITE (GABAPENTIN ENACARBIL) TABLET, 300 MG [Suspect]
     Active Substance: GABAPENTIN ENACARBIL
     Indication: RESTLESS LEGS SYNDROME
     Route: 048
     Dates: start: 20130930
  5. CYMBALTA [Concomitant]
     Active Substance: DULOXETINE HYDROCHLORIDE

REACTIONS (1)
  - Urticaria [None]

NARRATIVE: CASE EVENT DATE: 20131125
